FAERS Safety Report 4884528-6 (Version None)
Quarter: 2006Q1

REPORT INFORMATION
  Report Type: 
  Country: None (occurrence: None)
  Receive Date: 20060119
  Receipt Date: 20060113
  Transmission Date: 20060701
  Serious: Yes (Death)
  Sender: FDA-Public Use
  Company Number: PHBS2006BR00894

PATIENT
  Age: 76 Year
  Sex: Female

DRUGS (1)
  1. FORADIL [Suspect]
     Dosage: 12 UG, ONCE/SINGLE

REACTIONS (1)
  - DEATH [None]
